FAERS Safety Report 20124331 (Version 1)
Quarter: 2021Q4

REPORT INFORMATION
  Report Type: Spontaneous
  Country: CA (occurrence: CA)
  Receive Date: 20211129
  Receipt Date: 20211129
  Transmission Date: 20220304
  Serious: Yes (Hospitalization)
  Sender: FDA-Public Use
  Company Number: CA-BAYER-2021A255775

PATIENT
  Age: 80 Year
  Sex: Male

DRUGS (2)
  1. ALEVE [Interacting]
     Active Substance: NAPROXEN SODIUM
     Dosage: UNK
  2. LITHIUM CARBONATE [Interacting]
     Active Substance: LITHIUM CARBONATE
     Dosage: UNK

REACTIONS (4)
  - Antipsychotic drug level increased [Unknown]
  - Drug interaction [Unknown]
  - Accidental overdose [Unknown]
  - Confusional state [Unknown]
